FAERS Safety Report 4700696-0 (Version None)
Quarter: 2005Q2

REPORT INFORMATION
  Report Type: 
  Country: None (occurrence: None)
  Receive Date: 20050627
  Receipt Date: 20050621
  Transmission Date: 20051028
  Serious: Yes (Hospitalization)
  Sender: FDA-Public Use
  Company Number: MY-MERCK-0506MYS00019

PATIENT
  Sex: Female

DRUGS (3)
  1. HYZAAR [Suspect]
     Indication: BLOOD PRESSURE INADEQUATELY CONTROLLED
     Route: 048
  2. ATENOLOL [Concomitant]
     Route: 065
  3. DIURETIC (UNSPECIFIED) [Concomitant]
     Route: 065

REACTIONS (4)
  - BLOOD PRESSURE INCREASED [None]
  - EYE PAIN [None]
  - HEPATIC FUNCTION ABNORMAL [None]
  - PYREXIA [None]
